FAERS Safety Report 10577644 (Version 2)
Quarter: 2014Q4

REPORT INFORMATION
  Report Type: Spontaneous
  Country: DE (occurrence: IL)
  Receive Date: 20141111
  Receipt Date: 20141124
  Transmission Date: 20150529
  Serious: Yes (Hospitalization)
  Sender: FDA-Public Use
  Company Number: DE-ACTELION-A-US2014-107970

PATIENT
  Sex: Female

DRUGS (13)
  1. AMLODIPINE [Concomitant]
     Active Substance: AMLODIPINE BESYLATE
  2. BONDORMIN [Concomitant]
  3. CALCIUM [Concomitant]
     Active Substance: CALCIUM
  4. CARDILOC [Concomitant]
     Active Substance: BISOPROLOL FUMARATE
  5. EUTHYROX [Concomitant]
     Active Substance: LEVOTHYROXINE SODIUM
  6. AMIODARONE HYDROCHLORIDE. [Concomitant]
     Active Substance: AMIODARONE HYDROCHLORIDE
  7. VENTAVIS [Suspect]
     Active Substance: ILOPROST
     Indication: PULMONARY HYPERTENSION
     Dosage: UNK
     Route: 055
     Dates: start: 201211
  8. VOLIBRIS [Concomitant]
     Active Substance: AMBRISENTAN
  9. XARELTO [Suspect]
     Active Substance: RIVAROXABAN
     Indication: ATRIAL FIBRILLATION
     Dosage: 20 MG, QD
     Route: 065
     Dates: start: 201212
  10. CIPRALEX [Concomitant]
     Active Substance: ESCITALOPRAM OXALATE
  11. VITAMIN D [Concomitant]
     Active Substance: CHOLECALCIFEROL
  12. FUSID [Concomitant]
     Active Substance: FUROSEMIDE
  13. ALDACTONE [Concomitant]
     Active Substance: SPIRONOLACTONE

REACTIONS (1)
  - Eosinophilic pneumonia [Recovering/Resolving]

NARRATIVE: CASE EVENT DATE: 2014
